FAERS Safety Report 12864437 (Version 3)
Quarter: 2016Q4

REPORT INFORMATION
  Report Type: Spontaneous
  Country: US (occurrence: US)
  Receive Date: 20161020
  Receipt Date: 20161101
  Transmission Date: 20170207
  Serious: Yes (Other)
  Sender: FDA-Public Use
  Company Number: US-JNJFOC-20161011945

PATIENT
  Age: 37 Year
  Sex: Female
  Weight: 52.16 kg

DRUGS (2)
  1. IMODIUM MULTI-SYMPTOM RELIEF [Suspect]
     Active Substance: DIMETHICONE\LOPERAMIDE HYDROCHLORIDE
     Indication: COLITIS ULCERATIVE
     Route: 048
     Dates: start: 20160930, end: 20160930
  2. IMODIUM MULTI-SYMPTOM RELIEF [Suspect]
     Active Substance: DIMETHICONE\LOPERAMIDE HYDROCHLORIDE
     Route: 048

REACTIONS (7)
  - Choking [Recovered/Resolved]
  - Product coating issue [Unknown]
  - Product use issue [Unknown]
  - Off label use [Unknown]
  - Foreign body [Recovered/Resolved]
  - Product difficult to swallow [Unknown]
  - Product size issue [Unknown]

NARRATIVE: CASE EVENT DATE: 20160930
